FAERS Safety Report 20540136 (Version 1)
Quarter: 2022Q1

REPORT INFORMATION
  Report Type: Spontaneous
  Country: TW (occurrence: TW)
  Receive Date: 20220302
  Receipt Date: 20220302
  Transmission Date: 20220424
  Serious: Yes (Disabling)
  Sender: FDA-Public Use
  Company Number: TW-JNJFOC-20211132077

PATIENT
  Age: 43 Year
  Sex: Male

DRUGS (3)
  1. HALOPERIDOL [Suspect]
     Active Substance: HALOPERIDOL
     Indication: Alcohol withdrawal syndrome
     Route: 065
  2. HALOPERIDOL [Suspect]
     Active Substance: HALOPERIDOL
     Indication: Hallucination, visual
  3. HALOPERIDOL [Suspect]
     Active Substance: HALOPERIDOL
     Indication: Agitation

REACTIONS (1)
  - Coma [Unknown]
